FAERS Safety Report 8921859 (Version 1)
Quarter: 2012Q4

REPORT INFORMATION
  Report Type: 
  Country: BR (occurrence: BR)
  Receive Date: 20121121
  Receipt Date: 20121121
  Transmission Date: 20130627
  Serious: Yes (Other)
  Sender: FDA-Public Use
  Company Number: BR-ASTRAZENECA-2012SE86797

PATIENT
  Age: 53 Year
  Sex: Male

DRUGS (2)
  1. SELOZOK [Suspect]
     Indication: HYPERTENSION
     Route: 048
     Dates: start: 2010
  2. LEXOTAN [Concomitant]
     Route: 048

REACTIONS (1)
  - Blood pressure increased [Unknown]
